FAERS Safety Report 6113450-2 (Version None)
Quarter: 2009Q1

REPORT INFORMATION
  Report Type: 
  Country: None (occurrence: None)
  Receive Date: 20090312
  Receipt Date: 20090304
  Transmission Date: 20090719
  Serious: Yes (Other)
  Sender: FDA-Public Use
  Company Number: US-AVENTIS-200911065US

PATIENT
  Sex: Female
  Weight: 87.54 kg

DRUGS (2)
  1. LANTUS [Suspect]
     Route: 058
     Dates: start: 20070101
  2. OPTICLIK GREY [Suspect]

REACTIONS (3)
  - CATARACT [None]
  - DIABETIC RETINOPATHY [None]
  - VISUAL IMPAIRMENT [None]
